FAERS Safety Report 8329157-7 (Version None)
Quarter: 2012Q2

REPORT INFORMATION
  Report Type: 
  Country: None (occurrence: None)
  Receive Date: 20120502
  Receipt Date: 20101021
  Transmission Date: 20120825
  Serious: No
  Sender: FDA-Public Use
  Company Number: US-TEVA-2010005573

PATIENT
  Sex: Female
  Weight: 84.898 kg

DRUGS (4)
  1. NUVIGIL [Suspect]
     Indication: NARCOLEPSY
     Route: 048
     Dates: start: 20100712
  2. NUVIGIL [Suspect]
     Indication: SLEEP APNOEA SYNDROME
     Dosage: 300 MILLIGRAM;
     Route: 048
     Dates: start: 20100801, end: 20100925
  3. TOPAMAX [Concomitant]
  4. ADDERALL 5 [Concomitant]
     Dates: start: 20100101

REACTIONS (1)
  - DRUG INEFFECTIVE [None]
